FAERS Safety Report 14293958 (Version 5)
Quarter: 2019Q3

REPORT INFORMATION
  Report Type: Spontaneous
  Country: US (occurrence: US)
  Receive Date: 20171216
  Receipt Date: 20190709
  Transmission Date: 20191004
  Serious: No
  Sender: FDA-Public Use
  Company Number: US-TEVA-2017-US-832708

PATIENT
  Sex: Female

DRUGS (8)
  1. ULTRAM [Concomitant]
     Active Substance: TRAMADOL HYDROCHLORIDE
     Dosage: TID/PRN
  2. VALIUM [Concomitant]
     Active Substance: DIAZEPAM
     Dosage: TID/PRN
  3. GABAPENTIN. [Concomitant]
     Active Substance: GABAPENTIN
  4. ACTIQ [Suspect]
     Active Substance: FENTANYL CITRATE
     Indication: PAIN
     Dates: start: 2005, end: 2018
  5. FENTANYL. [Suspect]
     Active Substance: FENTANYL
     Route: 062
  6. PROZAC [Concomitant]
     Active Substance: FLUOXETINE HYDROCHLORIDE
     Dosage: QD
  7. ACTIQ [Suspect]
     Active Substance: FENTANYL CITRATE
     Indication: SPINAL PAIN
     Dosage: 1800 MICROGRAM DAILY;
     Dates: start: 2004, end: 2008
  8. ZANAFLEX [Concomitant]
     Active Substance: TIZANIDINE HYDROCHLORIDE

REACTIONS (7)
  - Tooth fracture [Not Recovered/Not Resolved]
  - Tooth injury [Not Recovered/Not Resolved]
  - Dermatitis contact [Unknown]
  - Product use in unapproved indication [Unknown]
  - Dental caries [Unknown]
  - Tooth disorder [Unknown]
  - Dental restoration failure [Unknown]
